FAERS Safety Report 8078276-1 (Version None)
Quarter: 2012Q1

REPORT INFORMATION
  Report Type: 
  Country: None (occurrence: None)
  Receive Date: 20120123
  Receipt Date: 20120102
  Transmission Date: 20120608
  Serious: Yes (Hospitalization)
  Sender: FDA-Public Use
  Company Number: DSA_48928_2012

PATIENT
  Sex: Male

DRUGS (2)
  1. ARTANE [Concomitant]
  2. XENAZINE [Suspect]
     Indication: PRODUCT USED FOR UNKNOWN INDICATION
     Dosage: 12.5 MG, QD ORAL (DF ORAL)
     Route: 048
     Dates: start: 20111109, end: 20111120

REACTIONS (4)
  - DYSTONIA [None]
  - DEHYDRATION [None]
  - PYREXIA [None]
  - BLOOD SODIUM INCREASED [None]
